FAERS Safety Report 9586661 (Version 1)
Quarter: 2013Q4

REPORT INFORMATION
  Report Type: Spontaneous
  Country: IT (occurrence: IT)
  Receive Date: 20131003
  Receipt Date: 20131003
  Transmission Date: 20140711
  Serious: Yes (Hospitalization)
  Sender: FDA-Public Use
  Company Number: IT-PFIZER INC-2013282999

PATIENT
  Age: 82 Year
  Sex: Female

DRUGS (5)
  1. NORVASC [Suspect]
     Indication: CARDIAC FAILURE
     Dosage: 5 MG, 1X/DAY
     Route: 048
     Dates: start: 20120602, end: 20121216
  2. TRIATEC [Concomitant]
  3. ZYLORIC [Concomitant]
  4. LASIX [Concomitant]
  5. TIKLID [Concomitant]

REACTIONS (1)
  - Hypotension [Recovering/Resolving]
